FAERS Safety Report 4830972-2 (Version None)
Quarter: 2005Q4

REPORT INFORMATION
  Report Type: 
  Country: None (occurrence: None)
  Receive Date: 20051114
  Receipt Date: 20051030
  Transmission Date: 20060501
  Serious: Yes (Death, Life-Threatening, Hospitalization)
  Sender: FDA-Public Use
  Company Number: 107985ISR

PATIENT
  Age: 73 Year
  Sex: Male

DRUGS (13)
  1. BISOPROLOL [Suspect]
     Dosage: 2.5 MILLIGRAM ORAL
     Route: 048
     Dates: start: 20040626, end: 20040626
  2. ANGIOMAX [Suspect]
     Dosage: 10 MILLIGRAM/0.25 MG/KG INTRAVENOUS BOLUS/INTRAVENOUS (NOS)
     Dates: start: 20040616, end: 20040616
  3. ANGIOMAX [Suspect]
     Dosage: 10 MILLIGRAM/0.25 MG/KG INTRAVENOUS BOLUS/INTRAVENOUS (NOS)
     Dates: start: 20040616, end: 20040618
  4. AMIODARONE [Suspect]
     Dosage: 1200 MILLIGRAM INTRAVENOUS (NOS)
     Route: 042
     Dates: start: 20040626, end: 20040626
  5. HALOPERIDOL DECANOATE [Suspect]
     Dates: start: 20040624, end: 20040625
  6. LORAZEPAM [Concomitant]
  7. AMLODIPINE BESYLATE [Concomitant]
  8. SIMVASTATIN [Concomitant]
  9. TEMAZEPAM [Concomitant]
  10. ACETYL SALICYLIC ACID [Concomitant]
  11. RAMIPRIL [Concomitant]
  12. ENOXAPARIN SODIUM [Concomitant]
  13. CEFTRIAXONE [Concomitant]

REACTIONS (8)
  - ATRIAL FIBRILLATION [None]
  - CARDIAC ARREST [None]
  - CARDIAC DISORDER [None]
  - CARDIOMEGALY [None]
  - CORONARY ARTERY DISEASE [None]
  - DEPRESSED LEVEL OF CONSCIOUSNESS [None]
  - DRUG INTERACTION [None]
  - VENTRICULAR FIBRILLATION [None]
